FAERS Safety Report 5517365-X (Version None)
Quarter: 2007Q4

REPORT INFORMATION
  Report Type: 
  Country: None (occurrence: None)
  Receive Date: 20071114
  Receipt Date: 20071107
  Transmission Date: 20080405
  Serious: Yes (Other)
  Sender: FDA-Public Use
  Company Number: US-ASTRAZENECA-2007UW25045

PATIENT
  Age: 43 Year
  Sex: Male
  Weight: 159.1 kg

DRUGS (7)
  1. SEROQUEL [Suspect]
     Indication: DEPRESSION
     Dosage: 25MG-150MG
     Route: 048
     Dates: start: 20020530
  2. SEROQUEL [Suspect]
     Indication: BIPOLAR DISORDER
     Dosage: 25MG-150MG
     Route: 048
     Dates: start: 20020530
  3. RISPERDAL [Concomitant]
     Indication: DEPRESSION
     Dates: start: 20000309
  4. RISPERDAL [Concomitant]
     Indication: BIPOLAR DISORDER
     Dates: start: 20000309
  5. ZYPREXA [Concomitant]
     Indication: DEPRESSION
     Dosage: 2.5MG-5MG
     Dates: start: 20010709, end: 20011101
  6. ZYPREXA [Concomitant]
     Indication: BIPOLAR DISORDER
     Dosage: 2.5MG-5MG
     Dates: start: 20010709, end: 20011101
  7. DEPAKOTE [Concomitant]
     Dates: start: 20060101

REACTIONS (7)
  - BARRETT'S OESOPHAGUS [None]
  - CHEST PAIN [None]
  - GASTRIC HAEMORRHAGE [None]
  - GASTROOESOPHAGEAL REFLUX DISEASE [None]
  - HYPERTENSION [None]
  - TYPE 2 DIABETES MELLITUS [None]
  - WEIGHT INCREASED [None]
